FAERS Safety Report 16392006 (Version 1)
Quarter: 2019Q2

REPORT INFORMATION
  Report Type: Spontaneous
  Country: US (occurrence: US)
  Receive Date: 20190605
  Receipt Date: 20190605
  Transmission Date: 20190711
  Serious: No
  Sender: FDA-Public Use
  Company Number: US-JNJFOC-20190530758

PATIENT
  Sex: Female
  Weight: 65.77 kg

DRUGS (4)
  1. XARELTO [Suspect]
     Active Substance: RIVAROXABAN
     Indication: PRODUCT USED FOR UNKNOWN INDICATION
     Route: 048
  2. BOSENTAN. [Concomitant]
     Active Substance: BOSENTAN
     Route: 065
  3. REVATIO [Concomitant]
     Active Substance: SILDENAFIL CITRATE
     Route: 065
  4. TYVASO [Suspect]
     Active Substance: TREPROSTINIL
     Indication: PRODUCT USED FOR UNKNOWN INDICATION
     Dosage: 3-9 BREATHS INHALED
     Route: 055
     Dates: start: 20180821

REACTIONS (4)
  - Throat irritation [Unknown]
  - Dental caries [Unknown]
  - Respiratory disorder [Unknown]
  - Tooth socket haemorrhage [Unknown]
